FAERS Safety Report 15607710 (Version 1)
Quarter: 2018Q4

REPORT INFORMATION
  Report Type: Spontaneous
  Country: US (occurrence: US)
  Receive Date: 20181112
  Receipt Date: 20181112
  Transmission Date: 20190205
  Serious: No
  Sender: FDA-Public Use
  Company Number: US-NEXGEN PHARMA, INC.-2058729

PATIENT
  Age: 43 Year
  Sex: Female

DRUGS (1)
  1. CHENODIOL TABLETS [Suspect]
     Active Substance: CHENODIOL
     Route: 048
     Dates: start: 20160309

REACTIONS (2)
  - Constipation [Unknown]
  - Weight increased [Unknown]
